FAERS Safety Report 7891171-3 (Version None)
Quarter: 2011Q4

REPORT INFORMATION
  Report Type: 
  Country: None (occurrence: None)
  Receive Date: 20111103
  Receipt Date: 20110729
  Transmission Date: 20120403
  Serious: No
  Sender: FDA-Public Use
  Company Number: US-AMGEN-USASP2011038658

PATIENT
  Age: 37 Year
  Sex: Female
  Weight: 77.098 kg

DRUGS (12)
  1. ENBREL [Suspect]
     Indication: PRODUCT USED FOR UNKNOWN INDICATION
     Dosage: 50 MG, QWK
  2. SEASONALE [Concomitant]
     Dosage: UNK
  3. TRAZODONE HYDROCHLORIDE [Concomitant]
     Dosage: 100 MG, UNK
  4. FERROUS SULFATE TAB [Concomitant]
     Dosage: UNK
  5. IBUPROFEN (ADVIL) [Concomitant]
     Dosage: 200 MG, UNK
  6. PREDNISONE [Concomitant]
     Dosage: 5 MG, UNK
  7. FOLIC ACID [Concomitant]
     Dosage: 20 MG, UNK
  8. EFFEXOR [Concomitant]
     Dosage: 150 MG, UNK
  9. VITAMINS                           /00067501/ [Concomitant]
     Dosage: UNK
  10. ELEVE [Concomitant]
     Dosage: 220 MG, UNK
  11. METHOTREXATE [Concomitant]
     Dosage: 2.5 MG, UNK
  12. TRAMADOL HCL [Concomitant]
     Dosage: 100 MG, UNK

REACTIONS (1)
  - HEADACHE [None]
